FAERS Safety Report 15881999 (Version 1)
Quarter: 2019Q1

REPORT INFORMATION
  Report Type: Spontaneous
  Country: CN (occurrence: CN)
  Receive Date: 20190128
  Receipt Date: 20190128
  Transmission Date: 20190417
  Serious: Yes (Other)
  Sender: FDA-Public Use
  Company Number: CN-PFIZER INC-2019034579

PATIENT
  Age: 10 Year
  Sex: Female

DRUGS (1)
  1. TAZOCIN [Suspect]
     Active Substance: PIPERACILLIN SODIUM\TAZOBACTAM SODIUM
     Dosage: UNK
     Route: 041
     Dates: start: 20190107

REACTIONS (7)
  - Blood pressure decreased [Unknown]
  - Loss of consciousness [Unknown]
  - Anal incontinence [Unknown]
  - Labile blood pressure [Unknown]
  - Seizure [Unknown]
  - Urinary incontinence [Unknown]
  - Hypersensitivity [Unknown]

NARRATIVE: CASE EVENT DATE: 20190107
